FAERS Safety Report 9050277 (Version 3)
Quarter: 2013Q1

REPORT INFORMATION
  Report Type: Spontaneous
  Country: DE (occurrence: DE)
  Receive Date: 20130205
  Receipt Date: 20130304
  Transmission Date: 20140127
  Serious: Yes (Hospitalization)
  Sender: FDA-Public Use
  Company Number: DE-PFIZER INC-2013040774

PATIENT
  Age: 52 Year
  Sex: Female
  Weight: 60 kg

DRUGS (6)
  1. PANTOZOL [Suspect]
     Dosage: 600 MG, SINGLE
     Route: 065
     Dates: start: 20130123, end: 20130123
  2. BISOPROLOL FUMARATE [Suspect]
     Dosage: 400 MG, SINGLE
     Dates: start: 20130123, end: 20130123
  3. TILIDINE [Suspect]
     Dosage: 500 MG, SINGLE
     Route: 065
     Dates: start: 20130123, end: 20130123
  4. CLONIDINE [Suspect]
     Dosage: 2.25 MG, SINGLE
     Dates: start: 20130123, end: 20130123
  5. DICLOFENAC [Suspect]
     Dosage: 2.25 G, SINGLE
     Dates: start: 20130123, end: 20130123
  6. METOPROLOL [Suspect]
     Dosage: 1 G, SINGLE
     Dates: start: 20130123, end: 20130123

REACTIONS (7)
  - Overdose [Unknown]
  - Suicide attempt [Recovering/Resolving]
  - Miosis [Recovering/Resolving]
  - Body temperature decreased [Recovering/Resolving]
  - Fatigue [Recovering/Resolving]
  - Vomiting [Recovering/Resolving]
  - Bradycardia [Recovering/Resolving]
